FAERS Safety Report 7773803-3 (Version None)
Quarter: 2011Q3

REPORT INFORMATION
  Report Type: 
  Country: None (occurrence: None)
  Receive Date: 20110923
  Receipt Date: 20110912
  Transmission Date: 20111222
  Serious: Yes (Other)
  Sender: FDA-Public Use
  Company Number: US-JNJFOC-20110905290

PATIENT
  Sex: Female
  Weight: 79.38 kg

DRUGS (3)
  1. REMICADE [Suspect]
     Indication: RHEUMATOID ARTHRITIS
     Route: 042
     Dates: start: 20010101
  2. GLUCOPHAGE [Suspect]
     Indication: DIABETES MELLITUS
     Route: 048
     Dates: start: 20020101
  3. METHOTREXATE [Concomitant]
     Indication: ARTHRITIS
     Route: 048
     Dates: start: 20010101

REACTIONS (8)
  - SKIN BURNING SENSATION [None]
  - LOSS OF CONSCIOUSNESS [None]
  - HYPERTENSION [None]
  - DIABETES MELLITUS [None]
  - WEIGHT FLUCTUATION [None]
  - INFUSION RELATED REACTION [None]
  - SCRATCH [None]
  - HEADACHE [None]
